FAERS Safety Report 26091463 (Version 1)
Quarter: 2025Q4

REPORT INFORMATION
  Report Type: Report from Study
  Country: CO (occurrence: CO)
  Receive Date: 20251126
  Receipt Date: 20251126
  Transmission Date: 20260118
  Serious: Yes (Hospitalization)
  Sender: ASTELLAS
  Company Number: CO-ASTELLAS-2025-AER-064936

PATIENT
  Age: 58 Year
  Sex: Male
  Weight: 54 kg

DRUGS (2)
  1. TACROLIMUS [Suspect]
     Active Substance: TACROLIMUS
     Indication: Liver transplant
     Dosage: PROGRAF XL 5 MG (ONE CAPSULE) AND PROGRAF XL 3 MG (ONE CAPSULE), DAILY DOSE OF 8 MG EVERY 24 HOURS
     Route: 048
     Dates: start: 2025
  2. TACROLIMUS [Suspect]
     Active Substance: TACROLIMUS
     Indication: Liver transplant
     Dosage: PROGRAF XL 5 MG (ONE CAPSULE) AND PROGRAF XL 3 MG (ONE CAPSULE), DAILY DOSE OF 8 MG EVERY 24 HOURS
     Route: 048
     Dates: start: 2025

REACTIONS (6)
  - Headache [Not Recovered/Not Resolved]
  - Eye pain [Not Recovered/Not Resolved]
  - Arthralgia [Not Recovered/Not Resolved]
  - Chills [Not Recovered/Not Resolved]
  - Seizure [Not Recovered/Not Resolved]
  - Pain in extremity [Not Recovered/Not Resolved]

NARRATIVE: CASE EVENT DATE: 20251112
